FAERS Safety Report 17532829 (Version 1)
Quarter: 2020Q1

REPORT INFORMATION
  Report Type: Spontaneous
  Country: US (occurrence: US)
  Receive Date: 20200312
  Receipt Date: 20200312
  Transmission Date: 20200409
  Serious: No
  Sender: FDA-Public Use
  Company Number: US-PFIZER INC-2020106743

PATIENT
  Age: 78 Year
  Sex: Female
  Weight: 72.57 kg

DRUGS (2)
  1. TOVIAZ [Suspect]
     Active Substance: FESOTERODINE FUMARATE
     Indication: INCONTINENCE
     Dosage: 4 MG, ALTERNATE DAY (ONCE DAILY EVERY OTHER DAY (ALTERNATING WITH THE 8))
     Route: 048
     Dates: start: 2013
  2. TOVIAZ [Suspect]
     Active Substance: FESOTERODINE FUMARATE
     Dosage: 8 MG, ALTERNATE DAY (ONCE DAILY EVERY OTHER DAY (ALTERNATING WITH THE 4MG) )
     Route: 048

REACTIONS (2)
  - Dry mouth [Not Recovered/Not Resolved]
  - Therapeutic product effect incomplete [Unknown]

NARRATIVE: CASE EVENT DATE: 2013
